FAERS Safety Report 19488466 (Version 3)
Quarter: 2021Q3

REPORT INFORMATION
  Report Type: Spontaneous
  Country: NL (occurrence: NL)
  Receive Date: 20210702
  Receipt Date: 20210921
  Transmission Date: 20211014
  Serious: Yes (Other)
  Sender: FDA-Public Use
  Company Number: NVSC2021NL147885

PATIENT
  Age: 55 Year
  Sex: Female

DRUGS (8)
  1. IBUPROFEN. [Suspect]
     Active Substance: IBUPROFEN
     Indication: PRODUCT USED FOR UNKNOWN INDICATION
     Dosage: UNK
     Route: 065
  2. REBIF [Suspect]
     Active Substance: INTERFERON BETA-1A
     Dosage: 44 UG
     Route: 058
     Dates: start: 2021
  3. PARACETAMOL [Suspect]
     Active Substance: ACETAMINOPHEN
     Indication: PRODUCT USED FOR UNKNOWN INDICATION
     Dosage: UNK
     Route: 065
  4. MAXALT [Concomitant]
     Active Substance: RIZATRIPTAN BENZOATE
     Indication: PRODUCT USED FOR UNKNOWN INDICATION
     Dosage: UNK
     Route: 065
  5. REBIF [Suspect]
     Active Substance: INTERFERON BETA-1A
     Dosage: 8.8UG (RESTARTED)
     Route: 058
     Dates: start: 2000, end: 2018
  6. REBIF [Suspect]
     Active Substance: INTERFERON BETA-1A
     Indication: RELAPSING-REMITTING MULTIPLE SCLEROSIS
     Dosage: REBIF DISPOSABLE NEEDLES
     Route: 058
     Dates: start: 2000, end: 2018
  7. AMITRIPTYLINE [Concomitant]
     Active Substance: AMITRIPTYLINE
     Indication: SLEEP DISORDER
     Dosage: 100MG
     Route: 065
  8. REBIF [Suspect]
     Active Substance: INTERFERON BETA-1A
     Dosage: RESTARTED
     Route: 058

REACTIONS (13)
  - Influenza like illness [Not Recovered/Not Resolved]
  - Injection site pain [Unknown]
  - Gait disturbance [Unknown]
  - Poor quality sleep [Unknown]
  - Injection site induration [Unknown]
  - Multiple sclerosis [Unknown]
  - Adverse reaction [Recovering/Resolving]
  - Injection site haemorrhage [Unknown]
  - Injection site bruising [Unknown]
  - Muscle spasms [Unknown]
  - Injection site erythema [Not Recovered/Not Resolved]
  - Injection site discolouration [Recovered/Resolved]
  - Needle issue [Unknown]
